FAERS Safety Report 4514202-7 (Version None)
Quarter: 2004Q4

REPORT INFORMATION
  Report Type: 
  Country: None (occurrence: None)
  Receive Date: 20041126
  Receipt Date: 20041112
  Transmission Date: 20050328
  Serious: Yes (Hospitalization, Other)
  Sender: FDA-Public Use
  Company Number: 2004062349

PATIENT
  Age: 45 Year
  Sex: Male

DRUGS (10)
  1. GEODON [Suspect]
     Indication: AFFECTIVE DISORDER
     Dosage: 120 MG (40 MG, 3 IN 1 D), ORAL
     Route: 048
     Dates: start: 20040618, end: 20040901
  2. GEODON [Suspect]
     Indication: AGGRESSION
     Dosage: 120 MG (40 MG, 3 IN 1 D), ORAL
     Route: 048
     Dates: start: 20040618, end: 20040901
  3. GEODON [Suspect]
     Indication: ATTENTION DEFICIT/HYPERACTIVITY DISORDER
     Dosage: 120 MG (40 MG, 3 IN 1 D), ORAL
     Route: 048
     Dates: start: 20040618, end: 20040901
  4. GEODON [Suspect]
     Indication: DEPRESSION
     Dosage: 120 MG (40 MG, 3 IN 1 D), ORAL
     Route: 048
     Dates: start: 20040618, end: 20040901
  5. GEODON [Suspect]
     Indication: POST-TRAUMATIC STRESS DISORDER
     Dosage: 120 MG (40 MG, 3 IN 1 D), ORAL
     Route: 048
     Dates: start: 20040618, end: 20040901
  6. PAROXETINE HCL [Concomitant]
  7. ZOLPIDEM TARTRATE [Concomitant]
  8. ARIPIPRAZOLE (ARIPIPRAZOLE) [Concomitant]
  9. COCAINE (COCAINE) [Concomitant]
  10. OXYCODONE HYDROCHLORIDE AND ACETAMINOPHEN [Concomitant]

REACTIONS (8)
  - AKATHISIA [None]
  - AMNESIA [None]
  - CEREBROVASCULAR ACCIDENT [None]
  - DYSARTHRIA [None]
  - DYSTONIA [None]
  - FACIAL PALSY [None]
  - THERAPEUTIC RESPONSE DECREASED [None]
  - TRANSIENT ISCHAEMIC ATTACK [None]
